FAERS Safety Report 8116489-0 (Version None)
Quarter: 2012Q1

REPORT INFORMATION
  Report Type: 
  Country: None (occurrence: None)
  Receive Date: 20120206
  Receipt Date: 20120130
  Transmission Date: 20120608
  Serious: Yes (Hospitalization)
  Sender: FDA-Public Use
  Company Number: SE-ABBOTT-11P-150-0860927-00

PATIENT
  Sex: Male
  Weight: 59 kg

DRUGS (6)
  1. HUMIRA [Suspect]
     Indication: JUVENILE ARTHRITIS
     Dates: start: 20110914, end: 20110914
  2. METHOTREXATE [Concomitant]
     Indication: JUVENILE ARTHRITIS
  3. ACETAMINOPHEN [Concomitant]
     Indication: JUVENILE ARTHRITIS
  4. OMEPRAZOLE [Concomitant]
     Indication: PRODUCT USED FOR UNKNOWN INDICATION
     Dosage: 20MG DAILY, AS NEEDED AT NIGHT
  5. IBUPROFEN [Concomitant]
     Indication: JUVENILE ARTHRITIS
     Dosage: AT NIGHT
  6. CORTISONE ACETATE [Concomitant]
     Indication: JUVENILE ARTHRITIS
     Dosage: 10MG DAILY, PHASING OUT

REACTIONS (13)
  - CARDIAC DISCOMFORT [None]
  - FEELING HOT [None]
  - TACHYCARDIA [None]
  - DYSPNOEA [None]
  - NASOPHARYNGITIS [None]
  - PALPITATIONS [None]
  - NAUSEA [None]
  - ARTHRITIS [None]
  - PAINFUL RESPIRATION [None]
  - ARTHRALGIA [None]
  - HYPERHIDROSIS [None]
  - DIZZINESS [None]
  - DECREASED ACTIVITY [None]
